FAERS Safety Report 24237159 (Version 1)
Quarter: 2024Q3

REPORT INFORMATION
  Report Type: Spontaneous
  Country: GB (occurrence: GB)
  Receive Date: 20240822
  Receipt Date: 20240822
  Transmission Date: 20241016
  Serious: Yes (Other)
  Sender: Unknown Manufacturer
  Company Number: None

PATIENT
  Age: 60 Year
  Sex: Female

DRUGS (1)
  1. ATORVASTATIN [Suspect]
     Active Substance: ATORVASTATIN
     Indication: Hypocholesterolaemia
     Dosage: 20MG EACH DAY
     Dates: start: 20240716, end: 20240815

REACTIONS (1)
  - Hypoacusis [Recovering/Resolving]

NARRATIVE: CASE EVENT DATE: 20240815
